FAERS Safety Report 17511322 (Version 1)
Quarter: 2020Q1

REPORT INFORMATION
  Report Type: Spontaneous
  Country: US (occurrence: US)
  Receive Date: 20200306
  Receipt Date: 20200306
  Transmission Date: 20200409
  Serious: Yes (Death)
  Sender: FDA-Public Use
  Company Number: NVSC2020US064132

PATIENT
  Age: 68 Year
  Sex: Male

DRUGS (2)
  1. MINOCYCLINE [Suspect]
     Active Substance: MINOCYCLINE HYDROCHLORIDE
     Indication: OSTEOMYELITIS BACTERIAL
     Dosage: UNK
     Route: 065
  2. POLYMYXIN B. [Suspect]
     Active Substance: POLYMYXIN B
     Indication: OSTEOMYELITIS BACTERIAL
     Dosage: UNK
     Route: 065

REACTIONS (2)
  - Multiple organ dysfunction syndrome [Fatal]
  - Product use in unapproved indication [Unknown]
